FAERS Safety Report 10347616 (Version 1)
Quarter: 2014Q3

REPORT INFORMATION
  Report Type: Spontaneous
  Country: BR (occurrence: BR)
  Receive Date: 20140729
  Receipt Date: 20140729
  Transmission Date: 20150326
  Serious: Yes (Other)
  Sender: FDA-Public Use
  Company Number: BR-PFIZER INC-2014206622

PATIENT
  Age: 52 Year
  Sex: Male
  Weight: 93 kg

DRUGS (4)
  1. AAS [Concomitant]
     Active Substance: ASPIRIN
     Indication: DIABETES MELLITUS
     Dosage: 1 TABLET 5X/DAILY
     Dates: start: 2004
  2. LIPITOR [Suspect]
     Active Substance: ATORVASTATIN CALCIUM
     Dosage: HALF TABLET DAILY
     Route: 048
     Dates: start: 2010
  3. METFORMIN [Concomitant]
     Active Substance: METFORMIN HYDROCHLORIDE
     Indication: DIABETES MELLITUS
     Dosage: 500 MG, UNK
     Dates: start: 2004
  4. CLOPIDOGREL [Concomitant]
     Active Substance: CLOPIDOGREL BISULFATE
     Indication: CARDIAC DISORDER
     Dosage: 1 TABLET, 1X/DAY
     Dates: start: 2012, end: 20140722

REACTIONS (1)
  - Cardiac disorder [Unknown]

NARRATIVE: CASE EVENT DATE: 20140721
